FAERS Safety Report 15646429 (Version 3)
Quarter: 2019Q2

REPORT INFORMATION
  Report Type: Spontaneous
  Country: FI (occurrence: FI)
  Receive Date: 20181122
  Receipt Date: 20190618
  Transmission Date: 20190711
  Serious: Yes (Hospitalization, Other)
  Sender: FDA-Public Use
  Company Number: FI-SUN PHARMACEUTICAL INDUSTRIES LTD-2018RR-191633

PATIENT
  Age: 53 Year
  Sex: Female

DRUGS (8)
  1. SPORANOX [Suspect]
     Active Substance: ITRACONAZOLE
     Indication: FUNGAL INFECTION
     Dosage: 100 MILLIGRAM, DAILY
     Route: 048
     Dates: start: 20180617, end: 201807
  2. CIPROXIN [Interacting]
     Active Substance: CIPROFLOXACIN
     Indication: PSEUDOMONAS INFECTION
     Dosage: 1000 MILLIGRAM, DAILY
     Route: 048
     Dates: start: 20180608, end: 20180624
  3. ESTRENA [Suspect]
     Active Substance: ESTRADIOL
     Indication: HORMONE REPLACEMENT THERAPY
     Dosage: ()
     Route: 065
  4. SPIRIX [Concomitant]
     Active Substance: SPIRONOLACTONE
     Indication: PRODUCT USED FOR UNKNOWN INDICATION
     Dosage: 25 MILLIGRAM, DAILY
     Route: 048
  5. FLAGYL [Concomitant]
     Active Substance: METRONIDAZOLE\METRONIDAZOLE HYDROCHLORIDE
     Indication: PRODUCT USED FOR UNKNOWN INDICATION
     Dosage: DOSAGE FORM: UNSPECIFIED
     Route: 065
     Dates: start: 20180622, end: 20180702
  6. CIPROFLOXACIN. [Suspect]
     Active Substance: CIPROFLOXACIN
     Indication: PRODUCT USED FOR UNKNOWN INDICATION
     Dosage: DOSAGE FORM: UNSPECIFIED
     Route: 065
     Dates: end: 20180624
  7. DESLORATADINE. [Concomitant]
     Active Substance: DESLORATADINE
     Indication: PRODUCT USED FOR UNKNOWN INDICATION
     Dosage: 5 MILLIGRAM, DAILY
     Route: 048
  8. PRECOSA [Concomitant]
     Active Substance: SACCHAROMYCES CEREVISIAE
     Indication: PRODUCT USED FOR UNKNOWN INDICATION
     Dosage: UNK
     Route: 065

REACTIONS (20)
  - Skin burning sensation [Unknown]
  - Erythema [Unknown]
  - Scar [Unknown]
  - Skin ulcer [Not Recovered/Not Resolved]
  - Psychomotor hyperactivity [Not Recovered/Not Resolved]
  - Heart rate increased [Recovering/Resolving]
  - Insomnia [Not Recovered/Not Resolved]
  - Anxiety [Not Recovered/Not Resolved]
  - Palpitations [Recovering/Resolving]
  - Thyroxine free increased [Recovering/Resolving]
  - Product use issue [Unknown]
  - Blood pressure diastolic increased [Recovering/Resolving]
  - Muscular weakness [Unknown]
  - Suicidal ideation [Not Recovered/Not Resolved]
  - Drug interaction [Not Recovered/Not Resolved]
  - Dry skin [Not Recovered/Not Resolved]
  - Nausea [Not Recovered/Not Resolved]
  - Malaise [Recovering/Resolving]
  - Headache [Unknown]
  - Swelling face [Unknown]

NARRATIVE: CASE EVENT DATE: 2018
